FAERS Safety Report 8769263 (Version 2)
Quarter: 2013Q1

REPORT INFORMATION
  Report Type: Spontaneous
  Country: IT (occurrence: IT)
  Receive Date: 20120905
  Receipt Date: 20130322
  Transmission Date: 20140127
  Serious: Yes (Hospitalization)
  Sender: FDA-Public Use
  Company Number: IT-AMGEN-ITASP2012055968

PATIENT
  Age: 60 Year
  Sex: Female

DRUGS (1)
  1. NPLATE [Suspect]
     Indication: IDIOPATHIC THROMBOCYTOPENIC PURPURA
     Dosage: 500 MG, QD
     Route: 058
     Dates: start: 20101202, end: 20120801

REACTIONS (1)
  - Mesenteric vein thrombosis [Recovered/Resolved]
